FAERS Safety Report 14269052 (Version 4)
Quarter: 2018Q2

REPORT INFORMATION
  Report Type: Spontaneous
  Country: FR (occurrence: FR)
  Receive Date: 20171211
  Receipt Date: 20180507
  Transmission Date: 20180711
  Serious: Yes (Hospitalization, Other)
  Sender: FDA-Public Use
  Company Number: FR-ASTELLAS-2017US052119

PATIENT
  Age: 63 Year
  Sex: Female

DRUGS (5)
  1. ADVAGRAF [Suspect]
     Active Substance: TACROLIMUS
     Indication: LIVER TRANSPLANT
     Route: 048
     Dates: start: 201309
  2. ADVAGRAF [Suspect]
     Active Substance: TACROLIMUS
     Dosage: UNK UNK, ONCE DAILY
     Route: 048
  3. ASPIRINE [Concomitant]
     Active Substance: ASPIRIN
     Indication: HEPATIC VASCULAR THROMBOSIS
     Route: 065
  4. CELLCEPT [Concomitant]
     Active Substance: MYCOPHENOLATE MOFETIL\MYCOPHENOLATE MOFETIL HYDROCHLORIDE
     Indication: IMMUNOSUPPRESSION
     Dosage: 500 MG IN THE MORNING AND 1000 MG IN THE EVENING
     Route: 048
     Dates: start: 2014
  5. ATENOLOL. [Concomitant]
     Active Substance: ATENOLOL
     Indication: EXTRASYSTOLES
     Dosage: 50 MG, ONCE DAILY IN THE MORNING
     Route: 048
     Dates: start: 2015

REACTIONS (7)
  - Pulmonary embolism [Not Recovered/Not Resolved]
  - Pyrexia [Recovered/Resolved]
  - Chlamydial infection [Recovered/Resolved]
  - Immunosuppressant drug level decreased [Unknown]
  - Fatigue [Recovered/Resolved]
  - Diarrhoea [Not Recovered/Not Resolved]
  - Drug interaction [Unknown]

NARRATIVE: CASE EVENT DATE: 201309
